FAERS Safety Report 4992833-8 (Version None)
Quarter: 2006Q1

REPORT INFORMATION
  Report Type: 
  Country: None (occurrence: None)
  Receive Date: 20060315
  Receipt Date: 20051223
  Transmission Date: 20060701
  Serious: No
  Sender: FDA-Public Use
  Company Number: 2006RL000007

PATIENT
  Age: 64 Year
  Sex: Male

DRUGS (5)
  1. OMACOR [Suspect]
     Indication: HYPERTRIGLYCERIDAEMIA
     Dosage: 2000 MG;QD;PO
     Route: 048
     Dates: start: 20051201
  2. NIASPAN [Concomitant]
  3. ZOCOR [Concomitant]
  4. ANDROGEL [Concomitant]
  5. ZETIA [Concomitant]

REACTIONS (1)
  - PERIPHERAL EMBOLISM [None]
